FAERS Safety Report 7891254-8 (Version None)
Quarter: 2011Q4

REPORT INFORMATION
  Report Type: 
  Country: None (occurrence: None)
  Receive Date: 20111103
  Receipt Date: 20110801
  Transmission Date: 20120403
  Serious: No
  Sender: FDA-Public Use
  Company Number: US-AMGEN-USASP2011039116

PATIENT
  Age: 56 Year
  Sex: Female

DRUGS (1)
  1. ENBREL [Suspect]
     Indication: RHEUMATOID ARTHRITIS
     Dosage: 25 MG, 2 TIMES/WK
     Dates: start: 20030401

REACTIONS (6)
  - NAUSEA [None]
  - URINARY TRACT INFECTION [None]
  - PYREXIA [None]
  - INFLUENZA [None]
  - INJECTION SITE PAIN [None]
  - VOMITING [None]
